FAERS Safety Report 7572680-3 (Version None)
Quarter: 2011Q2

REPORT INFORMATION
  Report Type: 
  Country: None (occurrence: None)
  Receive Date: 20110627
  Receipt Date: 20110617
  Transmission Date: 20111010
  Serious: No
  Sender: FDA-Public Use
  Company Number: US-BIOGENIDEC-2011BI022665

PATIENT
  Age: 37 Year
  Sex: Male

DRUGS (5)
  1. AVONEX [Suspect]
     Route: 030
     Dates: start: 20100901, end: 20101006
  2. AVONEX [Suspect]
     Route: 030
     Dates: start: 20070312, end: 20080801
  3. AVONEX [Suspect]
     Route: 030
     Dates: start: 20050103, end: 20060622
  4. AVONEX [Suspect]
     Route: 030
     Dates: start: 20080830, end: 20100106
  5. AVONEX [Suspect]
     Indication: MULTIPLE SCLEROSIS
     Route: 030
     Dates: start: 20110325

REACTIONS (3)
  - VISUAL IMPAIRMENT [None]
  - PARAESTHESIA [None]
  - BALANCE DISORDER [None]
